FAERS Safety Report 4381539-4 (Version None)
Quarter: 2004Q2

REPORT INFORMATION
  Report Type: 
  Country: None (occurrence: None)
  Receive Date: 20040621
  Receipt Date: 20020222
  Transmission Date: 20050107
  Serious: Yes (Hospitalization, Disabling, Other)
  Sender: FDA-Public Use
  Company Number: US-MERCK-0202USA02375

PATIENT
  Age: 40 Year
  Sex: Female
  Weight: 73 kg

DRUGS (2)
  1. VIOXX [Suspect]
     Indication: TOOTHACHE
     Route: 048
     Dates: start: 20010515, end: 20010521
  2. VIOXX [Suspect]
     Indication: POST PROCEDURAL PAIN
     Route: 048
     Dates: start: 20010515, end: 20010521

REACTIONS (18)
  - ABDOMINAL PAIN [None]
  - ANTIPHOSPHOLIPID SYNDROME [None]
  - BLOOD CHOLESTEROL INCREASED [None]
  - CEREBROVASCULAR ACCIDENT [None]
  - CHOLECYSTITIS [None]
  - CHRONIC FATIGUE SYNDROME [None]
  - COLONIC POLYP [None]
  - CONTUSION [None]
  - DIVERTICULUM [None]
  - DYSPEPSIA [None]
  - EMOTIONAL DISTRESS [None]
  - GASTROENTERITIS VIRAL [None]
  - HAEMORRHOIDS [None]
  - MENORRHAGIA [None]
  - NERVOUSNESS [None]
  - OVARIAN CYST [None]
  - TRANSIENT ISCHAEMIC ATTACK [None]
  - URINARY TRACT INFECTION [None]
